FAERS Safety Report 25571139 (Version 2)
Quarter: 2025Q3

REPORT INFORMATION
  Report Type: Other
  Country: EU (occurrence: EU)
  Receive Date: 20250717
  Receipt Date: 20250729
  Transmission Date: 20251021
  Serious: Yes (Hospitalization)
  Sender: ANI
  Company Number: EU-ANIPHARMA-023592

PATIENT
  Age: 51 Year
  Sex: Female

DRUGS (6)
  1. FLUVOXAMINE [Suspect]
     Active Substance: FLUVOXAMINE
     Indication: Depression
  2. ARIPIPRAZOLE [Concomitant]
     Active Substance: ARIPIPRAZOLE
     Indication: Psychotic disorder
  3. DIAZEPAM [Concomitant]
     Active Substance: DIAZEPAM
     Indication: Seizure
  4. LACOSAMIDE [Concomitant]
     Active Substance: LACOSAMIDE
     Indication: Seizure
  5. ARIPIPRAZOLE [Concomitant]
     Active Substance: ARIPIPRAZOLE
     Indication: Depression
  6. LACOSAMIDE [Concomitant]
     Active Substance: LACOSAMIDE
     Indication: Seizure

REACTIONS (2)
  - Drug interaction [Unknown]
  - Blood creatine phosphokinase increased [Recovered/Resolved]
